FAERS Safety Report 4436412-X (Version None)
Quarter: 2004Q3

REPORT INFORMATION
  Report Type: 
  Country: None (occurrence: None)
  Receive Date: 20040830
  Receipt Date: 20040507
  Transmission Date: 20050211
  Serious: Yes (Other)
  Sender: FDA-Public Use
  Company Number: US-BRISTOL-MYERS SQUIBB COMPANY-12581708

PATIENT
  Sex: Male

DRUGS (4)
  1. ABILIFY [Suspect]
     Route: 048
  2. LEXAPRO [Concomitant]
  3. WELLBUTRIN [Concomitant]
  4. RADIATION THERAPY [Concomitant]

REACTIONS (1)
  - NEUTROPENIA [None]
